FAERS Safety Report 4490428-6 (Version None)
Quarter: 2004Q4

REPORT INFORMATION
  Report Type: 
  Country: None (occurrence: None)
  Receive Date: 20041028
  Receipt Date: 20041018
  Transmission Date: 20050328
  Serious: Yes (Life-Threatening, Hospitalization)
  Sender: FDA-Public Use
  Company Number: 2004240361GB

PATIENT
  Age: 30 Year
  Sex: Female

DRUGS (2)
  1. SULFASALAZINE [Suspect]
     Indication: INFLAMMATION
     Dosage: 500 MG/DAY, ORAL
     Route: 048
     Dates: start: 20040513, end: 20040517
  2. DICLOFENAC [Concomitant]

REACTIONS (2)
  - HEPATIC FAILURE [None]
  - LIVER TRANSPLANT [None]
